FAERS Safety Report 25287269 (Version 1)
Quarter: 2025Q2

REPORT INFORMATION
  Report Type: Spontaneous
  Country: US (occurrence: None)
  Receive Date: 20250508
  Receipt Date: 20250508
  Transmission Date: 20250717
  Serious: Yes (Hospitalization)
  Sender: FDA-CTU
  Company Number: None

PATIENT
  Sex: Female

DRUGS (11)
  1. LENALIDOMIDE [Suspect]
     Active Substance: LENALIDOMIDE
     Indication: Plasma cell myeloma
     Route: 048
     Dates: start: 20240703
  2. AMOX/K CLAV? [Concomitant]
  3. BACTRIM [Concomitant]
     Active Substance: SULFAMETHOXAZOLE\TRIMETHOPRIM
  4. CALCIUM [Concomitant]
     Active Substance: CALCIUM
  5. DARZALEX [Concomitant]
     Active Substance: DARATUMUMAB
  6. FUROSEMIDE [Concomitant]
     Active Substance: FUROSEMIDE
  7. GRANIX  INJ [Concomitant]
  8. NINLARO [Concomitant]
     Active Substance: IXAZOMIB CITRATE
  9. ONDANSETRON [Concomitant]
     Active Substance: ONDANSETRON
  10. PAXLOVID [Concomitant]
     Active Substance: NIRMATRELVIR\RITONAVIR
  11. PRAMIPEXOLE [Concomitant]
     Active Substance: PRAMIPEXOLE

REACTIONS (1)
  - Therapy interrupted [None]
